FAERS Safety Report 15585980 (Version 2)
Quarter: 2018Q4

REPORT INFORMATION
  Report Type: Report from Study
  Country: US (occurrence: US)
  Receive Date: 20181105
  Receipt Date: 20181206
  Transmission Date: 20190205
  Serious: Yes (Death, Life-Threatening, Other)
  Sender: FDA-Public Use
  Company Number: US-EMD SERONO-9050001

PATIENT
  Age: 74 Year
  Sex: Female

DRUGS (1)
  1. REBIF [Suspect]
     Active Substance: INTERFERON BETA-1A
     Indication: MULTIPLE SCLEROSIS
     Route: 058
     Dates: start: 20061101, end: 201710

REACTIONS (7)
  - Hypertension [Unknown]
  - Loss of consciousness [Unknown]
  - Sleep apnoea syndrome [Unknown]
  - Cerebral haemorrhage [Fatal]
  - Hemiparesis [Unknown]
  - Coagulopathy [Unknown]
  - Migraine [Unknown]

NARRATIVE: CASE EVENT DATE: 20180404
